FAERS Safety Report 8074967-7 (Version None)
Quarter: 2012Q1

REPORT INFORMATION
  Report Type: 
  Country: None (occurrence: None)
  Receive Date: 20120127
  Receipt Date: 20120117
  Transmission Date: 20120608
  Serious: Yes (Hospitalization)
  Sender: FDA-Public Use
  Company Number: 203206

PATIENT
  Age: 54 Year
  Sex: Female
  Weight: 78 kg

DRUGS (4)
  1. DIAZEPAM [Concomitant]
     Indication: MUSCLE SPASMS
  2. SYNTHROID [Concomitant]
     Indication: PRODUCT USED FOR UNKNOWN INDICATION
  3. AVONEX [Suspect]
     Route: 030
     Dates: start: 20030801
  4. AVONEX [Suspect]
     Indication: MULTIPLE SCLEROSIS
     Route: 030
     Dates: start: 19970101, end: 20030801

REACTIONS (30)
  - BALANCE DISORDER [None]
  - MUSCLE STRAIN [None]
  - TREMOR [None]
  - COUGH [None]
  - WHEEZING [None]
  - INFLUENZA LIKE ILLNESS [None]
  - JOINT STIFFNESS [None]
  - JOINT SWELLING [None]
  - ARTHRALGIA [None]
  - FALL [None]
  - BLOOD PRESSURE INCREASED [None]
  - OROPHARYNGEAL PAIN [None]
  - RHINITIS [None]
  - APHASIA [None]
  - SINUSITIS [None]
  - STRESS [None]
  - SNEEZING [None]
  - CARTILAGE INJURY [None]
  - LIGAMENT RUPTURE [None]
  - OSTEOARTHRITIS [None]
  - BLOOD GLUCOSE INCREASED [None]
  - BLOOD CHOLESTEROL INCREASED [None]
  - ABASIA [None]
  - INJURY [None]
  - RHINITIS ALLERGIC [None]
  - DEPRESSION [None]
  - NAUSEA [None]
  - INJECTION SITE PAIN [None]
  - THYROID FUNCTION TEST ABNORMAL [None]
  - VOMITING [None]
